FAERS Safety Report 9399818 (Version 2)
Quarter: 2014Q1

REPORT INFORMATION
  Report Type: Spontaneous
  Country: JP (occurrence: JP)
  Receive Date: 20130715
  Receipt Date: 20140128
  Transmission Date: 20141002
  Serious: Yes (Death)
  Sender: FDA-Public Use
  Company Number: JP-JNJFOC-20130510466

PATIENT
  Age: 75 Year
  Sex: Male

DRUGS (5)
  1. DUROTEP MT [Suspect]
     Indication: CANCER PAIN
     Dosage: 100 UG/HR + 50 UG/HR = 150 UG/HR
     Route: 062
     Dates: start: 20130512, end: 20130517
  2. DUROTEP MT [Suspect]
     Indication: CANCER PAIN
     Route: 062
     Dates: start: 20130510, end: 20130511
  3. DUROTEP MT [Suspect]
     Indication: CANCER PAIN
     Route: 062
     Dates: start: 20130509, end: 20130509
  4. HOKUNALIN TAPE [Suspect]
     Indication: DYSPNOEA
     Route: 062
     Dates: start: 20130509, end: 20130513
  5. OXINORM (OXYCODONE HYDROCHLORIDE) [Concomitant]
     Indication: CANCER PAIN
     Route: 048
     Dates: start: 20130405, end: 20130517

REACTIONS (2)
  - Lymphangiosis carcinomatosa [Fatal]
  - Generalised erythema [Recovering/Resolving]
